FAERS Safety Report 9694977 (Version 2)
Quarter: 2013Q4

REPORT INFORMATION
  Report Type: Spontaneous
  Country: CA (occurrence: CA)
  Receive Date: 20131119
  Receipt Date: 20131204
  Transmission Date: 20140711
  Serious: No
  Sender: FDA-Public Use
  Company Number: CA-BRISTOL-MYERS SQUIBB COMPANY-19798271

PATIENT
  Age: 89 Year
  Sex: Female

DRUGS (15)
  1. HYDREA [Suspect]
     Route: 048
  2. APO-ALLOPURINOL [Concomitant]
     Dosage: TABS
     Dates: start: 201310
  3. ATIVAN [Concomitant]
     Dosage: TABS
     Dates: start: 2009
  4. IRBESARTAN TABS [Concomitant]
     Dates: start: 201007
  5. NIACIN TABS [Concomitant]
     Dosage: VITAMIN B3 TABS
     Dates: start: 20131119
  6. ASAPHEN [Concomitant]
     Dosage: TABS
     Dates: start: 2009
  7. METFORMIN HCL TABS 500MG [Concomitant]
     Dates: start: 2009
  8. JANUVIA [Concomitant]
     Dosage: TABS
     Dates: start: 201201
  9. EURO D [Concomitant]
     Dosage: EURO-D 1000 UI CAPS
     Dates: start: 201304
  10. SODIUM POLYSTYRENE SULFONATE [Concomitant]
     Dosage: STRENGTH 100%
     Route: 048
     Dates: start: 20131007
  11. XYLOCAINE [Concomitant]
     Dosage: OINTMENT
     Dates: start: 20131017
  12. FLOVENT [Concomitant]
     Dosage: FLOVENT  HFA 125MCG/DOSE
     Route: 048
     Dates: start: 2009
  13. APO-SALVENT [Concomitant]
     Dosage: 100MCG/DOSE
     Route: 048
     Dates: start: 2009
  14. BETAHISTINE [Concomitant]
     Dates: start: 20130808
  15. ACETAMINOPHEN+CAFFEINE+CODEINE [Concomitant]

REACTIONS (2)
  - Erythema [Unknown]
  - Discomfort [Unknown]
